FAERS Safety Report 11494302 (Version 1)
Quarter: 2015Q3

REPORT INFORMATION
  Report Type: Spontaneous
  Country: US (occurrence: None)
  Receive Date: 20150910
  Receipt Date: 20150910
  Transmission Date: 20151125
  Serious: No
  Sender: FDA-Public Use
  Company Number: None

PATIENT
  Age: 39 Year
  Sex: Female
  Weight: 65.77 kg

DRUGS (9)
  1. METHENAMINE [Suspect]
     Active Substance: METHENAMINE
     Indication: PROPHYLAXIS
     Dosage: 1 PILL
     Route: 048
     Dates: start: 20150602
  2. FIBER SUPPLEMENT CAPSULES [Concomitant]
  3. D-MANNOSE [Concomitant]
  4. MULTIVITAMIN [Concomitant]
     Active Substance: VITAMINS
  5. OMEPRAZOLE. [Concomitant]
     Active Substance: OMEPRAZOLE
  6. DGL [Concomitant]
  7. SPRINTEC [Concomitant]
     Active Substance: ETHINYL ESTRADIOL\NORGESTIMATE
  8. METHENAMINE [Suspect]
     Active Substance: METHENAMINE
     Indication: URINARY TRACT INFECTION
     Dosage: 1 PILL
     Route: 048
     Dates: start: 20150602
  9. CLARITIN [Concomitant]
     Active Substance: LORATADINE

REACTIONS (6)
  - Photophobia [None]
  - Middle insomnia [None]
  - Headache [None]
  - Fatigue [None]
  - Initial insomnia [None]
  - Vision blurred [None]

NARRATIVE: CASE EVENT DATE: 20150801
